FAERS Safety Report 9702388 (Version 1)
Quarter: 2013Q4

REPORT INFORMATION
  Report Type: Spontaneous
  Country: JP (occurrence: JP)
  Receive Date: 20131121
  Receipt Date: 20131121
  Transmission Date: 20140711
  Serious: Yes (Death, Other)
  Sender: FDA-Public Use
  Company Number: JP-ASTRAZENECA-2013SE85345

PATIENT
  Sex: Male

DRUGS (6)
  1. SEROQUEL [Suspect]
     Route: 048
     Dates: start: 20110310, end: 20110321
  2. SEROQUEL [Suspect]
     Route: 048
     Dates: start: 20110322
  3. GRAMALIL [Concomitant]
     Route: 048
     Dates: start: 20110210
  4. GRAMALIL [Concomitant]
     Route: 048
     Dates: start: 20110310
  5. LUVOX [Concomitant]
     Route: 048
  6. LUVOX [Concomitant]
     Route: 048

REACTIONS (4)
  - Cardiac failure [Fatal]
  - Activities of daily living impaired [Unknown]
  - Dysstasia [Unknown]
  - Condition aggravated [Unknown]
